FAERS Safety Report 12977622 (Version 1)
Quarter: 2016Q4

REPORT INFORMATION
  Report Type: Spontaneous
  Country: US (occurrence: US)
  Receive Date: 20161125
  Receipt Date: 20161125
  Transmission Date: 20170207
  Serious: No
  Sender: FDA-Public Use
  Company Number: None

PATIENT
  Age: 23 Year
  Sex: Female
  Weight: 62.55 kg

DRUGS (4)
  1. RECLIPSEN CLONIDINE [Concomitant]
  2. ADDERALL [Concomitant]
     Active Substance: AMPHETAMINE ASPARTATE\AMPHETAMINE SULFATE\DEXTROAMPHETAMINE SACCHARATE\DEXTROAMPHETAMINE SULFATE
  3. TOPAMAX [Concomitant]
     Active Substance: TOPIRAMATE
  4. BACLOFEN. [Suspect]
     Active Substance: BACLOFEN
     Indication: ANXIETY
     Dosage: QUANTITY:2 TABLET(S); AT BEDTIME; ORAL?
     Route: 048

REACTIONS (3)
  - Anxiety [None]
  - Vomiting [None]
  - Nausea [None]

NARRATIVE: CASE EVENT DATE: 20161125
